FAERS Safety Report 25875153 (Version 1)
Quarter: 2025Q4

REPORT INFORMATION
  Report Type: Spontaneous
  Country: EU (occurrence: EU)
  Receive Date: 20251003
  Receipt Date: 20251003
  Transmission Date: 20260117
  Serious: Yes (Other)
  Sender: JOHNSON AND JOHNSON
  Company Number: EU-JNJFOC-20250919221

PATIENT
  Age: 38 Year
  Sex: Female

DRUGS (1)
  1. RYBREVANT [Suspect]
     Active Substance: AMIVANTAMAB-VMJW
     Indication: Lung neoplasm malignant
     Route: 042
     Dates: start: 202502

REACTIONS (3)
  - Pulmonary embolism [Unknown]
  - Lung cancer metastatic [Not Recovered/Not Resolved]
  - Rash [Recovering/Resolving]
